FAERS Safety Report 5313247-7 (Version None)
Quarter: 2007Q2

REPORT INFORMATION
  Report Type: 
  Country: None (occurrence: None)
  Receive Date: 20070501
  Receipt Date: 20070423
  Transmission Date: 20071010
  Serious: Yes (Other)
  Sender: FDA-Public Use
  Company Number: US-JNJFOC-20070405350

PATIENT
  Sex: Female
  Weight: 61.24 kg

DRUGS (6)
  1. DURAGESIC-100 [Suspect]
     Indication: BACK PAIN
     Route: 062
  2. COREG [Concomitant]
     Indication: MITRAL VALVE REPLACEMENT
     Route: 048
  3. DIOVAN [Concomitant]
     Route: 048
  4. HYDROCODONE [Concomitant]
     Indication: BACK PAIN
     Dosage: 10/325 MG
     Route: 048
  5. LASIX [Concomitant]
     Route: 048
  6. THIOURACIL [Concomitant]
     Indication: THYROID DISORDER
     Route: 048

REACTIONS (3)
  - KIDNEY INFECTION [None]
  - NEURALGIA [None]
  - UPPER RESPIRATORY TRACT INFECTION [None]
